FAERS Safety Report 8282230-4 (Version None)
Quarter: 2012Q2

REPORT INFORMATION
  Report Type: 
  Country: None (occurrence: None)
  Receive Date: 20120413
  Receipt Date: 20120404
  Transmission Date: 20120825
  Serious: Yes (Death)
  Sender: FDA-Public Use
  Company Number: US-PFIZER INC-2011311724

PATIENT
  Age: 36 Year
  Sex: Female

DRUGS (5)
  1. CARISOPRODOL [Suspect]
  2. MEPROBAMATE [Suspect]
  3. OXYCODONE HCL [Suspect]
     Dosage: UNK
     Route: 048
  4. ACETAMINOPHEN [Suspect]
  5. COCAINE [Suspect]

REACTIONS (1)
  - COMPLETED SUICIDE [None]
